FAERS Safety Report 6798227-7 (Version None)
Quarter: 2010Q2

REPORT INFORMATION
  Report Type: 
  Country: None (occurrence: None)
  Receive Date: 20100623
  Receipt Date: 20100608
  Transmission Date: 20101027
  Serious: Yes (Death, Other)
  Sender: FDA-Public Use
  Company Number: 2010BI002165

PATIENT
  Age: 68 Year
  Sex: Female

DRUGS (9)
  1. ZEVALIN [Suspect]
     Indication: MANTLE CELL LYMPHOMA STAGE III
     Dosage: 130 MBQ; 1X; IV
     Route: 042
     Dates: start: 20091215, end: 20091222
  2. RITUXIMAB [Concomitant]
  3. OTHER ANALGESICS AND ANTIPYRETICS [Concomitant]
  4. ANTIHISTAMINES [Concomitant]
  5. RITUXIMAB [Concomitant]
  6. CYCLOPHOSPHAMIDE [Concomitant]
  7. CYTARABINE [Concomitant]
  8. DEXAMETHASONE [Concomitant]
  9. ETOPOSIDE [Concomitant]

REACTIONS (7)
  - ANURIA [None]
  - INTESTINAL PERFORATION [None]
  - NEOPLASM PROGRESSION [None]
  - PERITONITIS [None]
  - PLATELET COUNT DECREASED [None]
  - SEPTIC SHOCK [None]
  - WHITE BLOOD CELL COUNT DECREASED [None]
